FAERS Safety Report 13587801 (Version 1)
Quarter: 2017Q2

REPORT INFORMATION
  Report Type: Spontaneous
  Country: US (occurrence: US)
  Receive Date: 20170527
  Receipt Date: 20170527
  Transmission Date: 20170830
  Serious: No
  Sender: FDA-Public Use
  Company Number: US-ASTRAZENECA-2017SE56340

PATIENT
  Sex: Female

DRUGS (1)
  1. TUDORZA PRESSAIR [Suspect]
     Active Substance: ACLIDINIUM BROMIDE
     Dosage: ONE PUFF, TWICE A DAY
     Route: 055

REACTIONS (5)
  - Eructation [Unknown]
  - Product quality issue [Unknown]
  - Intentional product misuse [Unknown]
  - Kyphosis [Unknown]
  - Product use issue [Unknown]
